FAERS Safety Report 17184449 (Version 1)
Quarter: 2019Q4

REPORT INFORMATION
  Report Type: Spontaneous
  Country: US (occurrence: US)
  Receive Date: 20191219
  Receipt Date: 20191219
  Transmission Date: 20200122
  Serious: Yes (Death)
  Sender: FDA-Public Use
  Company Number: None

PATIENT
  Age: 56 Year
  Sex: Female

DRUGS (12)
  1. EYE DROPS DRO 0.25% [Concomitant]
     Dates: start: 20190325, end: 20191219
  2. VITAMIN K TAB 100MCG [Concomitant]
     Dates: start: 20160206, end: 20191219
  3. VITAMIN B12 TAB 500MCG [Concomitant]
     Dates: start: 20160206, end: 20191219
  4. XGEVA [Concomitant]
     Active Substance: DENOSUMAB
     Dates: start: 20160712, end: 20191219
  5. AFINITOR [Concomitant]
     Active Substance: EVEROLIMUS
     Dates: start: 20180510, end: 20191219
  6. LEXAPRO TAB 10MG [Concomitant]
     Dates: start: 20160206, end: 20191219
  7. METFORMIN TAB 500MG ER [Concomitant]
     Dates: start: 20171030, end: 20191219
  8. IBRANCE [Suspect]
     Active Substance: PALBOCICLIB
     Indication: AGRANULOCYTOSIS
     Dosage: ?          OTHER FREQUENCY:1XDYFR21DYOF28DYCY;?
     Route: 048
     Dates: start: 20160909, end: 20191219
  9. CLARITIN RDT TAB 10MG [Concomitant]
     Dates: start: 20170418, end: 20191219
  10. CALCIUM/D TAB 600-400 [Concomitant]
     Dates: start: 20160206, end: 20191219
  11. MULTI VITAMIN TAB MINERALS [Concomitant]
     Dates: start: 20160206, end: 20191219
  12. EXEMESTANE TAB 25MG [Concomitant]
     Active Substance: EXEMESTANE
     Dates: start: 20170830, end: 20191219

REACTIONS (1)
  - Death [None]

NARRATIVE: CASE EVENT DATE: 20191219
